FAERS Safety Report 6920835-0 (Version None)
Quarter: 2010Q3

REPORT INFORMATION
  Report Type: 
  Country: None (occurrence: None)
  Receive Date: 20100812
  Receipt Date: 20100809
  Transmission Date: 20110219
  Serious: Yes (Life-Threatening)
  Sender: FDA-Public Use
  Company Number: FR-SANOFI-AVENTIS-2010SA046893

PATIENT
  Age: 86 Year
  Sex: Female

DRUGS (7)
  1. LOVENOX [Suspect]
     Route: 042
     Dates: start: 20100708, end: 20100719
  2. LASIX [Concomitant]
  3. CORDARONE [Concomitant]
  4. PREVISCAN [Concomitant]
  5. LEVOTHYROXINE SODIUM [Concomitant]
  6. EUPRESSYL [Concomitant]
  7. ESOMEPRAZOLE MAGNESIUM [Concomitant]

REACTIONS (2)
  - HYPERSENSITIVITY [None]
  - RESPIRATORY ARREST [None]
